FAERS Safety Report 9452835 (Version 13)
Quarter: 2017Q4

REPORT INFORMATION
  Report Type: Spontaneous
  Country: GB (occurrence: GB)
  Receive Date: 20130812
  Receipt Date: 20171006
  Transmission Date: 20180321
  Serious: Yes (Other)
  Sender: FDA-Public Use
  Company Number: GB-JNJFOC-20130802045

PATIENT
  Age: 42 Year
  Sex: Female
  Weight: 74 kg

DRUGS (21)
  1. INTELENCE [Suspect]
     Active Substance: ETRAVIRINE
     Indication: HIV INFECTION
     Route: 048
     Dates: start: 20081023
  2. TIPRANAVIR [Concomitant]
     Active Substance: TIPRANAVIR
     Route: 065
     Dates: start: 20081023
  3. NOVORAPID [Concomitant]
     Active Substance: INSULIN ASPART
     Indication: GESTATIONAL DIABETES
     Route: 065
     Dates: end: 20091022
  4. ISENTRESS [Suspect]
     Active Substance: RALTEGRAVIR POTASSIUM
     Indication: HIV INFECTION
     Dosage: FOR 2 YEARS AND 4 MONTHS
     Route: 048
  5. TRUVADA [Suspect]
     Active Substance: EMTRICITABINE\TENOFOVIR DISOPROXIL FUMARATE
     Indication: HIV INFECTION
     Dosage: 18 MONTHS
     Route: 048
     Dates: start: 20070905, end: 20081023
  6. INTELENCE [Suspect]
     Active Substance: ETRAVIRINE
     Indication: HIV INFECTION
     Route: 048
     Dates: end: 20081023
  7. APTIVUS [Suspect]
     Active Substance: TIPRANAVIR
     Indication: HIV INFECTION
     Dosage: FOR 2 YEARS
     Route: 048
     Dates: start: 20060905, end: 20081023
  8. ENFUVIRTIDE. [Concomitant]
     Active Substance: ENFUVIRTIDE
     Route: 065
  9. ISENTRESS [Suspect]
     Active Substance: RALTEGRAVIR POTASSIUM
     Indication: HIV INFECTION
     Route: 048
     Dates: start: 20081023, end: 20090221
  10. NORVIR [Suspect]
     Active Substance: RITONAVIR
     Indication: HIV INFECTION
     Dosage: FOR 2 YEARS
     Route: 048
     Dates: start: 20081023
  11. PREDNISOLONE. [Concomitant]
     Active Substance: PREDNISOLONE
     Indication: PRODUCT USED FOR UNKNOWN INDICATION
     Route: 065
  12. NOVORAPID [Concomitant]
     Active Substance: INSULIN ASPART
     Indication: GESTATIONAL DIABETES
     Route: 065
  13. ZIDOVUDINE. [Suspect]
     Active Substance: ZIDOVUDINE
     Indication: ANTIVIRAL PROPHYLAXIS
     Route: 065
  14. INSULIN [Concomitant]
     Active Substance: INSULIN NOS
     Indication: GESTATIONAL DIABETES
     Route: 065
  15. OXYGEN. [Concomitant]
     Active Substance: OXYGEN
     Route: 065
  16. NITROUS OXIDE. [Concomitant]
     Active Substance: NITROUS OXIDE
     Route: 065
  17. ZIDOVUDINE. [Concomitant]
     Active Substance: ZIDOVUDINE
     Route: 065
  18. PREZISTA [Suspect]
     Active Substance: DARUNAVIR ETHANOLATE
     Indication: HIV INFECTION
     Route: 048
     Dates: start: 20081023
  19. INTELENCE [Suspect]
     Active Substance: ETRAVIRINE
     Indication: HIV INFECTION
     Route: 048
  20. NORVIR [Suspect]
     Active Substance: RITONAVIR
     Indication: HIV INFECTION
     Route: 048
  21. NORVIR [Suspect]
     Active Substance: RITONAVIR
     Indication: HIV INFECTION
     Dosage: FOR 2 YEARS
     Route: 048
     Dates: start: 20060905, end: 20081022

REACTIONS (6)
  - Premature labour [Recovered/Resolved]
  - Exposure during pregnancy [Recovered/Resolved]
  - Alanine aminotransferase abnormal [Recovered/Resolved]
  - Lipodystrophy acquired [Recovered/Resolved]
  - Aspartate aminotransferase abnormal [Recovered/Resolved]
  - Drug-induced liver injury [Unknown]

NARRATIVE: CASE EVENT DATE: 20090221
